FAERS Safety Report 6627034-0 (Version None)
Quarter: 2010Q1

REPORT INFORMATION
  Report Type: 
  Country: None (occurrence: None)
  Receive Date: 20100311
  Receipt Date: 20091231
  Transmission Date: 20100710
  Serious: No
  Sender: FDA-Public Use
  Company Number: US-KINGPHARMUSA00001-K200901637

PATIENT
  Sex: Male
  Weight: 95.238 kg

DRUGS (2)
  1. EMBEDA [Suspect]
     Indication: BACK PAIN
     Dosage: 80 MG, EVERY 12 HOURS
     Route: 048
     Dates: start: 20091201
  2. OXYCONTIN [Concomitant]
     Indication: BREAKTHROUGH PAIN

REACTIONS (1)
  - DRUG INEFFECTIVE [None]
